FAERS Safety Report 18333127 (Version 1)
Quarter: 2020Q4

REPORT INFORMATION
  Report Type: Report from Study
  Country: JP (occurrence: JP)
  Receive Date: 20201001
  Receipt Date: 20201001
  Transmission Date: 20210113
  Serious: Yes (Other)
  Sender: FDA-Public Use
  Company Number: JP-TEVA-2020-JP-1832949

PATIENT
  Age: 36 Year
  Sex: Female

DRUGS (6)
  1. CARBOPLATIN. [Suspect]
     Active Substance: CARBOPLATIN
     Indication: IMMUNE TOLERANCE INDUCTION
     Dosage: THE FIRST INFUSION BAG CONTAINED 1/1000 OF THE TOTAL CARBOPLATIN DOSE DILUTED IN 250 ML OF 5% GLU...
     Route: 050
  2. DEXAMETHASONE. [Concomitant]
     Active Substance: DEXAMETHASONE
     Indication: PREMEDICATION
     Route: 065
  3. CARBOPLATIN. [Suspect]
     Active Substance: CARBOPLATIN
     Indication: ENDOMETRIAL CANCER STAGE IV
     Dosage: 5750 ML (HAD RECEIVED 9 COURSES OF CARBOPLATIN)
     Route: 065
  4. RANITIDINE. [Concomitant]
     Active Substance: RANITIDINE
     Indication: PREMEDICATION
     Route: 065
  5. D-CHLORPHENIRAMINE MALEATE [Concomitant]
     Active Substance: DEXCHLORPHENIRAMINE MALEATE
     Indication: PREMEDICATION
     Route: 065
  6. GLUCOSE [Concomitant]
     Active Substance: DEXTROSE
     Indication: VEHICLE SOLUTION USE
     Route: 050

REACTIONS (7)
  - Abdominal pain [Unknown]
  - Nausea [Unknown]
  - Cold sweat [Unknown]
  - Hepatic function abnormal [Unknown]
  - White blood cell count decreased [Unknown]
  - Hypoxia [Unknown]
  - Neutrophil count decreased [Unknown]
